FAERS Safety Report 14706516 (Version 3)
Quarter: 2018Q2

REPORT INFORMATION
  Report Type: Report from Study
  Country: US (occurrence: US)
  Receive Date: 20180402
  Receipt Date: 20180412
  Transmission Date: 20180711
  Serious: Yes (Hospitalization)
  Sender: FDA-Public Use
  Company Number: US-ACTELION-A-NJ2017-159297

PATIENT
  Age: 48 Year
  Sex: Female
  Weight: 56.24 kg

DRUGS (8)
  1. REMODULIN [Suspect]
     Active Substance: TREPROSTINIL
     Dosage: 28 NG/KG, PER MIN
     Route: 042
     Dates: start: 20180321
  2. OPSUMIT [Suspect]
     Active Substance: MACITENTAN
     Indication: PULMONARY HYPERTENSION
     Dosage: 10 MG, QD
     Route: 048
  3. WARFARIN [Concomitant]
     Active Substance: WARFARIN
  4. HYDROCORTISONE. [Concomitant]
     Active Substance: HYDROCORTISONE
  5. REMODULIN [Suspect]
     Active Substance: TREPROSTINIL
     Dosage: 27 NG/KG, PER MIN
     Route: 042
     Dates: start: 201803
  6. REMODULIN [Suspect]
     Active Substance: TREPROSTINIL
     Indication: PRODUCT USED FOR UNKNOWN INDICATION
     Dosage: UNK
     Route: 058
  7. ADCIRCA [Concomitant]
     Active Substance: TADALAFIL
  8. REMODULIN [Suspect]
     Active Substance: TREPROSTINIL
     Dosage: 29 NG/KG, PER MIN
     Route: 042

REACTIONS (15)
  - Hypersensitivity [Unknown]
  - Dyspnoea [Unknown]
  - Pain in extremity [Recovered/Resolved]
  - Abdominal pain [Unknown]
  - Pain [Unknown]
  - Nausea [Unknown]
  - Rash [Unknown]
  - Diarrhoea [Unknown]
  - Pruritus [Unknown]
  - Eye swelling [Unknown]
  - Skin abrasion [Unknown]
  - Injection site rash [Unknown]
  - Injection site reaction [Unknown]
  - Dermatitis contact [Unknown]
  - Bronchitis [Unknown]

NARRATIVE: CASE EVENT DATE: 20171103
